FAERS Safety Report 8391464-X (Version None)
Quarter: 2012Q2

REPORT INFORMATION
  Report Type: 
  Country: None (occurrence: None)
  Receive Date: 20120529
  Receipt Date: 20120521
  Transmission Date: 20120825
  Serious: Yes (Hospitalization)
  Sender: FDA-Public Use
  Company Number: US-BAYER-2012-052078

PATIENT
  Age: 27 Year
  Sex: Female
  Weight: 84 kg

DRUGS (3)
  1. SYNTHROID [Concomitant]
     Indication: HYPOTHYROIDISM
  2. YASMIN [Suspect]
  3. DROSPIRENONE AND ETHINYL ESTRADIOL [Suspect]

REACTIONS (1)
  - PULMONARY EMBOLISM [None]
